FAERS Safety Report 7396086-5 (Version None)
Quarter: 2011Q2

REPORT INFORMATION
  Report Type: 
  Country: None (occurrence: None)
  Receive Date: 20110406
  Receipt Date: 20110325
  Transmission Date: 20111010
  Serious: Yes (Death)
  Sender: FDA-Public Use
  Company Number: CA-JNJFOC-20091105679

PATIENT
  Sex: Female
  Weight: 66.67 kg

DRUGS (6)
  1. TIAZAC [Concomitant]
  2. CALCIUM/COLECALCIFEROL [Concomitant]
  3. ASPIRIN [Concomitant]
  4. IBUPROFEN [Suspect]
     Indication: OSTEOARTHRITIS
     Route: 048
  5. DIOVAN HCT [Concomitant]
  6. NEXIUM [Concomitant]
     Indication: GASTROINTESTINAL DISORDER THERAPY

REACTIONS (1)
  - DEATH [None]
